FAERS Safety Report 13929574 (Version 3)
Quarter: 2017Q4

REPORT INFORMATION
  Report Type: Spontaneous
  Country: US (occurrence: US)
  Receive Date: 20170901
  Receipt Date: 20171115
  Transmission Date: 20180320
  Serious: No
  Sender: FDA-Public Use
  Company Number: US-PFIZER INC-2017375801

PATIENT
  Age: 53 Year
  Sex: Female

DRUGS (3)
  1. MTX [Concomitant]
     Active Substance: METHOTREXATE SODIUM
     Dosage: UNK
  2. XELJANZ [Suspect]
     Active Substance: TOFACITINIB CITRATE
     Dosage: 5 MG, 2X/DAY
     Route: 048
     Dates: start: 20170720, end: 20171011
  3. XELJANZ [Suspect]
     Active Substance: TOFACITINIB CITRATE
     Indication: RHEUMATOID ARTHRITIS
     Dosage: 5 MG, 2X/DAY
     Route: 048
     Dates: start: 201707

REACTIONS (8)
  - Drug dose omission [Unknown]
  - Fatigue [Unknown]
  - Drug ineffective [Unknown]
  - Swelling face [Recovering/Resolving]
  - Eating disorder [Unknown]
  - Jaw disorder [Recovering/Resolving]
  - Ear pain [Recovering/Resolving]
  - Pain in jaw [Not Recovered/Not Resolved]
